FAERS Safety Report 25211171 (Version 1)
Quarter: 2025Q2

REPORT INFORMATION
  Report Type: Spontaneous
  Country: US (occurrence: US)
  Receive Date: 20250417
  Receipt Date: 20250417
  Transmission Date: 20250717
  Serious: No
  Sender: INSUD PHARMA
  Company Number: US-INSUD PHARMA-2504US02714

PATIENT

DRUGS (1)
  1. SLYND [Suspect]
     Active Substance: DROSPIRENONE
     Indication: Product used for unknown indication
     Route: 048

REACTIONS (4)
  - Blood pressure increased [Unknown]
  - Joint swelling [Unknown]
  - Intermenstrual bleeding [Unknown]
  - Heavy menstrual bleeding [Recovered/Resolved]
